FAERS Safety Report 8317822-7 (Version None)
Quarter: 2012Q2

REPORT INFORMATION
  Report Type: 
  Country: None (occurrence: None)
  Receive Date: 20120427
  Receipt Date: 20120420
  Transmission Date: 20120825
  Serious: Yes (Life-Threatening, Hospitalization, Other)
  Sender: FDA-Public Use
  Company Number: LB-SANOFI-AVENTIS-2012SA017154

PATIENT
  Age: 75 Year
  Sex: Male

DRUGS (3)
  1. CABAZITAXEL [Suspect]
     Indication: PROSTATE CANCER
     Route: 042
     Dates: start: 20110404, end: 20110404
  2. CABAZITAXEL [Suspect]
     Route: 042
     Dates: start: 20120222, end: 20120222
  3. PREDNISONE [Suspect]
     Indication: PROSTATE CANCER
     Route: 048
     Dates: start: 20110404

REACTIONS (1)
  - PULMONARY EMBOLISM [None]
